FAERS Safety Report 9694229 (Version 1)
Quarter: 2013Q4

REPORT INFORMATION
  Report Type: Spontaneous
  Country: US (occurrence: US)
  Receive Date: 20131118
  Receipt Date: 20131118
  Transmission Date: 20140711
  Serious: No
  Sender: FDA-Public Use
  Company Number: US-PFIZER INC-2013328334

PATIENT
  Age: 48 Year
  Sex: Male
  Weight: 77.1 kg

DRUGS (1)
  1. LYRICA [Suspect]
     Indication: HIV PERIPHERAL NEUROPATHY
     Dosage: 150 MG (BY TAKING 2 CAPSULES OF 75MG IN THE MORNING AND 2 CAPSULES OF 75MG IN THE EVENING), 2X/DAY
     Route: 048
     Dates: start: 2007

REACTIONS (3)
  - Off label use [Unknown]
  - Malaise [Unknown]
  - Immune system disorder [Unknown]
